FAERS Safety Report 9454316 (Version 2)
Quarter: 2015Q4

REPORT INFORMATION
  Report Type: Report from Study
  Country: US (occurrence: US)
  Receive Date: 20130812
  Receipt Date: 20151020
  Transmission Date: 20160305
  Serious: Yes (Other)
  Sender: FDA-Public Use
  Company Number: US-ROCHE-1260362

PATIENT
  Sex: Female

DRUGS (4)
  1. LUCENTIS [Suspect]
     Active Substance: RANIBIZUMAB
     Indication: CYSTOID MACULAR OEDEMA
     Dosage: 0.3 MG OD MONTHLY
     Route: 050
  2. LUCENTIS [Suspect]
     Active Substance: RANIBIZUMAB
     Indication: DIABETIC EYE DISEASE
  3. LUCENTIS [Suspect]
     Active Substance: RANIBIZUMAB
     Indication: DIABETIC RETINOPATHY
  4. LUCENTIS [Suspect]
     Active Substance: RANIBIZUMAB
     Indication: DIABETIC RETINAL OEDEMA

REACTIONS (9)
  - Eye pain [Recovered/Resolved]
  - Visual acuity reduced [Unknown]
  - Retinal injury [Unknown]
  - Eye irritation [Unknown]
  - Retinal haemorrhage [Unknown]
  - Eye pruritus [Unknown]
  - Visual impairment [Unknown]
  - Migraine [Unknown]
  - Photopsia [Unknown]
